FAERS Safety Report 8329555 (Version 2)
Quarter: 2014Q1

REPORT INFORMATION
  Report Type: Report from Study
  Country: BR (occurrence: BR)
  Receive Date: 20120110
  Receipt Date: 20140131
  Transmission Date: 20141002
  Serious: Yes (Death, Hospitalization, Other)
  Sender: FDA-Public Use
  Company Number: BR-ROCHE-725161

PATIENT
  Age: 63 Year
  Sex: Female
  Weight: 55 kg

DRUGS (14)
  1. RITUXIMAB [Suspect]
     Indication: RHEUMATOID ARTHRITIS
     Dosage: ROUTE: ENDOVENOUS; DOSE: 100 MG/10ML, FORM INFUSION
     Route: 050
     Dates: start: 20071215, end: 20071230
  2. ARADOIS [Concomitant]
     Route: 065
  3. OS-CAL [Concomitant]
     Route: 065
  4. VITAMIN C [Concomitant]
     Dosage: DRUG REPORTED AS C VITAMIN
     Route: 065
  5. BONVIVA [Concomitant]
  6. ALDACTONE (BRAZIL) [Concomitant]
     Route: 065
  7. NEXIUM [Concomitant]
     Route: 065
  8. CHLOROQUINE [Concomitant]
     Route: 065
  9. ANCORON [Concomitant]
     Route: 065
  10. PRELONE [Concomitant]
     Route: 065
  11. SYNTHROID [Concomitant]
     Indication: HYPOTHYROIDISM
     Route: 065
  12. FLUDROCORTISONE [Concomitant]
     Dosage: MAGISTRAL MEDICATION
     Route: 065
  13. CORTISONE [Concomitant]
  14. VELAXIN [Concomitant]

REACTIONS (21)
  - Spinal disorder [Unknown]
  - Dizziness [Unknown]
  - Dysarthria [Unknown]
  - Blood sodium decreased [Recovering/Resolving]
  - Blood potassium decreased [Recovering/Resolving]
  - Coma [Unknown]
  - Fall [Unknown]
  - Pain [Recovering/Resolving]
  - Hypertension [Not Recovered/Not Resolved]
  - Malaise [Recovering/Resolving]
  - Local swelling [Recovering/Resolving]
  - Local swelling [Not Recovered/Not Resolved]
  - Local swelling [Not Recovered/Not Resolved]
  - Erythema [Recovering/Resolving]
  - Pain in extremity [Recovering/Resolving]
  - Pain in extremity [Not Recovered/Not Resolved]
  - Pneumonia [Fatal]
  - Oxygen saturation decreased [Recovering/Resolving]
  - Generalised oedema [Not Recovered/Not Resolved]
  - Hypothyroidism [Not Recovered/Not Resolved]
  - Arthritis [Not Recovered/Not Resolved]
